FAERS Safety Report 10406840 (Version 1)
Quarter: 2014Q3

REPORT INFORMATION
  Report Type: Spontaneous
  Country: FR (occurrence: None)
  Receive Date: 20140821
  Receipt Date: 20140821
  Transmission Date: 20150326
  Serious: Yes (Hospitalization)
  Sender: FDA-Public Use
  Company Number: 7313830

PATIENT
  Age: 63 Year
  Sex: Male

DRUGS (3)
  1. ATACAND (CANDESARTAN CILEXETIL) (CANDESARTAN CILEXETIL) [Concomitant]
  2. TRIATEC (RAMIPRIL) [Concomitant]
     Active Substance: RAMIPRIL
  3. LEVOTHYROX [Suspect]
     Active Substance: LEVOTHYROXINE
     Indication: HYPOTHYROIDISM
     Route: 048
     Dates: start: 201310

REACTIONS (9)
  - Constipation [None]
  - Suprapubic pain [None]
  - Asthenia [None]
  - Weight decreased [None]
  - Hyperthyroidism [None]
  - Chromaturia [None]
  - Urine odour abnormal [None]
  - Overdose [None]
  - Blood thyroid stimulating hormone decreased [None]

NARRATIVE: CASE EVENT DATE: 201404
